FAERS Safety Report 19488893 (Version 2)
Quarter: 2021Q3

REPORT INFORMATION
  Report Type: Report from Study
  Country: US (occurrence: US)
  Receive Date: 20210703
  Receipt Date: 20210911
  Transmission Date: 20211014
  Serious: No
  Sender: FDA-Public Use
  Company Number: NVSC2021US135934

PATIENT

DRUGS (1)
  1. COSENTYX [Suspect]
     Active Substance: SECUKINUMAB
     Indication: PSORIASIS
     Route: 065

REACTIONS (4)
  - Pruritus [Not Recovered/Not Resolved]
  - Insomnia [Recovering/Resolving]
  - Product dose omission issue [Recovering/Resolving]
  - Pain [Recovering/Resolving]
